FAERS Safety Report 14199682 (Version 3)
Quarter: 2018Q1

REPORT INFORMATION
  Report Type: Report from Study
  Country: DE (occurrence: DE)
  Receive Date: 20171117
  Receipt Date: 20180123
  Transmission Date: 20180508
  Serious: Yes (Other)
  Sender: FDA-Public Use
  Company Number: PHHY2017DE167197

PATIENT
  Sex: Male
  Weight: 69 kg

DRUGS (9)
  1. DESFERAL [Suspect]
     Active Substance: DEFEROXAMINE MESYLATE
     Dosage: 20 MG/KG, QD(2-5 INFUSIONS PER WEEK ? 100ML)
     Route: 042
     Dates: start: 20170327, end: 20170412
  2. DESFERAL [Suspect]
     Active Substance: DEFEROXAMINE MESYLATE
     Indication: MYELODYSPLASTIC SYNDROME
     Dosage: 20 MG/KG, QD(2-5 INFUSIONS PER WEEK ? 100ML)
     Route: 042
     Dates: start: 20160622, end: 20160711
  3. PANTOZOL [Concomitant]
     Active Substance: PANTOPRAZOLE SODIUM
     Indication: PROPHYLAXIS
     Dosage: 20 MG, QD
     Route: 065
     Dates: start: 2014
  4. DESFERAL [Suspect]
     Active Substance: DEFEROXAMINE MESYLATE
     Dosage: 40 MG/KG, UNK (2.-5 INFUSIONS PER WEEK A 100 ML)
     Route: 042
     Dates: start: 20170224, end: 20170318
  5. DESFERAL [Suspect]
     Active Substance: DEFEROXAMINE MESYLATE
     Dosage: 20 MG/KG, QD(2-5 INFUSIONS PER WEEK ? 100ML)
     Route: 042
     Dates: start: 20170502
  6. INSULIN [Concomitant]
     Active Substance: INSULIN NOS
     Indication: DIABETES MELLITUS
     Dosage: SEVERAL TIMES PER DAY
     Route: 058
     Dates: start: 2014
  7. DESFERAL [Suspect]
     Active Substance: DEFEROXAMINE MESYLATE
     Dosage: 20 MG/KG, QD(2-5 INFUSIONS PER WEEK ? 100ML)
     Route: 042
     Dates: start: 20160718, end: 20160810
  8. DESFERAL [Suspect]
     Active Substance: DEFEROXAMINE MESYLATE
     Dosage: 20 MG/KG, QD(2-5 INFUSIONS PER WEEK ? 100ML)
     Route: 042
     Dates: start: 20161103, end: 20170223
  9. RAMIPRIL. [Concomitant]
     Active Substance: RAMIPRIL
     Indication: HYPERTENSION
     Dosage: 2.5 MG, QD
     Route: 065
     Dates: start: 20160622

REACTIONS (3)
  - Pneumonia [Recovered/Resolved]
  - Lenticular opacities [Unknown]
  - Visual impairment [Recovered/Resolved]

NARRATIVE: CASE EVENT DATE: 20170319
